FAERS Safety Report 5249843-5 (Version None)
Quarter: 2007Q1

REPORT INFORMATION
  Report Type: 
  Country: None (occurrence: None)
  Receive Date: 20070228
  Receipt Date: 20070221
  Transmission Date: 20070707
  Serious: Yes (Hospitalization, Other)
  Sender: FDA-Public Use
  Company Number: NO-GLAXOSMITHKLINE-B0445258A

PATIENT
  Age: 81 Year
  Sex: Female

DRUGS (17)
  1. ZOVIRAX [Suspect]
     Indication: HERPES ZOSTER
     Route: 065
     Dates: start: 20060627
  2. DIOVAN [Concomitant]
     Dosage: 160MG AT NIGHT
     Route: 048
  3. TITRALAC [Concomitant]
     Dosage: 1400MG PER DAY
  4. NEXIUM [Concomitant]
     Dosage: 40MG PER DAY
  5. ZOCOR [Concomitant]
     Dosage: 20MG AT NIGHT
  6. NITROGLYCERIN [Concomitant]
     Dosage: .5MG AS REQUIRED
  7. VENOFER [Concomitant]
     Indication: DIALYSIS
  8. XYLOCAINE [Concomitant]
     Route: 061
  9. NITRO-DUR [Concomitant]
     Dosage: 5MG PER DAY
  10. NEORECORMON [Concomitant]
     Indication: DIALYSIS
  11. IMOVANE [Concomitant]
  12. DIURAL [Concomitant]
  13. PARACET [Concomitant]
     Dosage: 500MG AS REQUIRED
  14. CIPROFLOXACIN HYDROCHLORIDE [Concomitant]
     Indication: URINARY TRACT INFECTION
     Route: 048
     Dates: start: 20060627
  15. PLENDIL [Concomitant]
  16. ALBYL-E [Concomitant]
  17. METOPROLOL SUCCINATE [Concomitant]
     Dosage: 100MG PER DAY

REACTIONS (6)
  - APATHY [None]
  - DIZZINESS [None]
  - FEELING DRUNK [None]
  - GENERAL PHYSICAL HEALTH DETERIORATION [None]
  - MALAISE [None]
  - WHITE BLOOD CELLS URINE POSITIVE [None]
